FAERS Safety Report 4944049-9 (Version None)
Quarter: 2006Q1

REPORT INFORMATION
  Report Type: 
  Country: None (occurrence: None)
  Receive Date: 20060315
  Receipt Date: 20060302
  Transmission Date: 20060701
  Serious: Yes (Other)
  Sender: FDA-Public Use
  Company Number: PHEH2006US02891

PATIENT
  Age: 53 Year
  Sex: Male
  Weight: 93.424 kg

DRUGS (8)
  1. ZOMETA [Suspect]
     Indication: PROSTATE CANCER
     Dosage: 4 MG, UNK
     Route: 042
     Dates: start: 20040301, end: 20060201
  2. AREDIA [Suspect]
     Indication: PROSTATE CANCER
     Dosage: UNK, UNK
     Dates: start: 20040301, end: 20060201
  3. MITOXANTRONE [Concomitant]
  4. PREDNISONE [Concomitant]
  5. OXYCONTIN [Concomitant]
  6. OXYCODONE [Concomitant]
  7. ARANESP [Concomitant]
  8. LUPRON [Concomitant]

REACTIONS (2)
  - ABSCESS [None]
  - OSTEONECROSIS [None]
